FAERS Safety Report 12574113 (Version 1)
Quarter: 2016Q3

REPORT INFORMATION
  Report Type: Spontaneous
  Country: US (occurrence: US)
  Receive Date: 20160720
  Receipt Date: 20160720
  Transmission Date: 20161109
  Serious: No
  Sender: FDA-Public Use
  Company Number: US-TEVA-670329USA

PATIENT
  Age: 55 Year
  Sex: Female

DRUGS (1)
  1. ZECUITY [Suspect]
     Active Substance: SUMATRIPTAN SUCCINATE
     Route: 062

REACTIONS (9)
  - Application site paraesthesia [Recovered/Resolved]
  - Application site erythema [Recovered/Resolved]
  - Inappropriate schedule of drug administration [Unknown]
  - Application site pain [Recovered/Resolved]
  - Application site discolouration [Recovered/Resolved]
  - Application site rash [Recovered/Resolved]
  - Application site vesicles [Recovered/Resolved]
  - Product physical issue [Unknown]
  - Application site irritation [Recovered/Resolved]

NARRATIVE: CASE EVENT DATE: 201605
